FAERS Safety Report 6844903-7 (Version None)
Quarter: 2010Q3

REPORT INFORMATION
  Report Type: 
  Country: None (occurrence: None)
  Receive Date: 20100715
  Receipt Date: 20100712
  Transmission Date: 20110219
  Serious: Yes (Hospitalization, Other)
  Sender: FDA-Public Use
  Company Number: TN-ROXANE LABORATORIES, INC.-2010-RO-00825RO

PATIENT
  Age: 46 Year
  Sex: Male

DRUGS (8)
  1. MYCOPHENOLATE MOFETIL [Suspect]
     Indication: IMMUNOSUPPRESSANT DRUG THERAPY
  2. PREDNISONE [Suspect]
  3. TERBINAFINE HCL [Suspect]
     Indication: INTERTRIGO
  4. SOLU-MEDROL [Suspect]
     Indication: IMMUNOSUPPRESSANT DRUG THERAPY
  5. THYMOGLOBULIN [Suspect]
     Indication: IMMUNOSUPPRESSANT DRUG THERAPY
  6. PROGRAF [Suspect]
     Indication: IMMUNOSUPPRESSANT DRUG THERAPY
  7. IMIPENEM [Suspect]
     Indication: ABSCESS
  8. AMIKACYN [Suspect]
     Indication: ABSCESS

REACTIONS (12)
  - ABSCESS [None]
  - ANAEMIA [None]
  - CELL DEATH [None]
  - CHOLESTASIS [None]
  - DRUG INEFFECTIVE [None]
  - FUNGAL INFECTION [None]
  - GROIN ABSCESS [None]
  - INTERTRIGO [None]
  - LOBAR PNEUMONIA [None]
  - NOCARDIOSIS [None]
  - SICKLE CELL ANAEMIA [None]
  - TYPE 1 DIABETES MELLITUS [None]
